FAERS Safety Report 11127560 (Version 1)
Quarter: 2015Q2

REPORT INFORMATION
  Report Type: Spontaneous
  Country: US (occurrence: US)
  Receive Date: 20150521
  Receipt Date: 20150521
  Transmission Date: 20150821
  Serious: No
  Sender: FDA-Public Use
  Company Number: US-JNJFOC-20150509217

PATIENT
  Sex: Male

DRUGS (1)
  1. INVEGA SUSTENNA [Suspect]
     Active Substance: PALIPERIDONE PALMITATE
     Indication: PRODUCT USED FOR UNKNOWN INDICATION
     Route: 030

REACTIONS (6)
  - Diplopia [Recovered/Resolved]
  - Fatigue [Unknown]
  - Muscular weakness [Unknown]
  - Salivary hypersecretion [Unknown]
  - Impaired work ability [Unknown]
  - Speech disorder [Unknown]

NARRATIVE: CASE EVENT DATE: 2015
